FAERS Safety Report 10558098 (Version 2)
Quarter: 2014Q4

REPORT INFORMATION
  Report Type: Spontaneous
  Country: US (occurrence: US)
  Receive Date: 20141031
  Receipt Date: 20141031
  Transmission Date: 20150529
  Serious: No
  Sender: FDA-Public Use
  Company Number: US-GLAXOSMITHKLINE-A1090867A

PATIENT
  Age: 75 Year
  Sex: Male

DRUGS (12)
  1. HYTRIN [Concomitant]
     Active Substance: TERAZOSIN HYDROCHLORIDE
  2. PROLIA SOLUTION FOR INJECTION [Concomitant]
  3. AVODART [Suspect]
     Active Substance: DUTASTERIDE
     Indication: PROSTATOMEGALY
     Route: 048
     Dates: start: 20140918
  4. B-12 VITAMIN [Concomitant]
  5. CLARINEX [Concomitant]
     Active Substance: DESLORATADINE
  6. ZIPAN [Concomitant]
     Active Substance: PROMETHAZINE HYDROCHLORIDE
  7. PERCOCET [Concomitant]
     Active Substance: ACETAMINOPHEN\OXYCODONE HYDROCHLORIDE
     Indication: MIGRAINE
  8. XARELTO [Concomitant]
     Active Substance: RIVAROXABAN
  9. IRON [Concomitant]
     Active Substance: IRON
  10. CITRUCEL [Concomitant]
     Active Substance: METHYLCELLULOSE (4000 MPA.S)
  11. NASONEX [Concomitant]
     Active Substance: MOMETASONE FUROATE
  12. PROVIGIL [Concomitant]
     Active Substance: MODAFINIL

REACTIONS (2)
  - Hypotension [Unknown]
  - Migraine [Recovered/Resolved]

NARRATIVE: CASE EVENT DATE: 20140921
